FAERS Safety Report 5760732-X (Version None)
Quarter: 2008Q2

REPORT INFORMATION
  Report Type: 
  Country: None (occurrence: None)
  Receive Date: 20080606
  Receipt Date: 20071221
  Transmission Date: 20081010
  Serious: No
  Sender: FDA-Public Use
  Company Number: US-BAYER-200717247NA

PATIENT
  Age: 24 Year
  Sex: Female
  Weight: 71 kg

DRUGS (2)
  1. MIRENA [Suspect]
     Indication: CONTRACEPTION
     Route: 015
     Dates: start: 20071220
  2. ALBUTEROL [Concomitant]
     Indication: ASTHMA

REACTIONS (5)
  - ABDOMINAL PAIN LOWER [None]
  - DIARRHOEA [None]
  - FEELING JITTERY [None]
  - PROCEDURAL NAUSEA [None]
  - PROCEDURAL VOMITING [None]
